FAERS Safety Report 10051772 (Version 2)
Quarter: 2014Q3

REPORT INFORMATION
  Report Type: Report from Study
  Country: GB (occurrence: GB)
  Receive Date: 20140402
  Receipt Date: 20140710
  Transmission Date: 20150326
  Serious: Yes (Death, Other)
  Sender: FDA-Public Use
  Company Number: GB-AMGEN-GBRCT2014022494

PATIENT
  Age: 74 Year
  Sex: Male

DRUGS (1)
  1. ETANERCEPT [Suspect]
     Active Substance: ETANERCEPT
     Indication: RHEUMATOID ARTHRITIS
     Dosage: 25 MG, UNK
     Route: 065
     Dates: start: 20050301

REACTIONS (2)
  - Aortic aneurysm [Fatal]
  - Lung carcinoma cell type unspecified stage 0 [Fatal]

NARRATIVE: CASE EVENT DATE: 20120329
